FAERS Safety Report 5117125-8 (Version None)
Quarter: 2006Q3

REPORT INFORMATION
  Report Type: 
  Country: None (occurrence: None)
  Receive Date: 20060929
  Receipt Date: 20060920
  Transmission Date: 20061208
  Serious: Yes (Life-Threatening, Other)
  Sender: FDA-Public Use
  Company Number: ES-ABBOTT-06P-144-0344479-00

PATIENT
  Age: 31 Year
  Sex: Female

DRUGS (4)
  1. KALETRA [Suspect]
     Indication: HIV INFECTION
     Route: 048
     Dates: start: 20060101, end: 20060516
  2. TRUVADA [Interacting]
     Indication: HIV INFECTION
     Dosage: 200/245 MG
     Route: 030
     Dates: start: 20060101, end: 20060516
  3. HERCEPTIN [Interacting]
     Indication: BREAST CANCER
     Route: 042
     Dates: start: 20060509, end: 20060509
  4. DOCETAXEL [Interacting]
     Indication: BREAST CANCER
     Route: 042
     Dates: start: 20060510, end: 20060510

REACTIONS (4)
  - AGRANULOCYTOSIS [None]
  - BREAST CANCER [None]
  - DRUG INTERACTION [None]
  - MUCOSAL INFLAMMATION [None]
